FAERS Safety Report 22033633 (Version 1)
Quarter: 2023Q1

REPORT INFORMATION
  Report Type: Spontaneous
  Country: US (occurrence: US)
  Receive Date: 20230224
  Receipt Date: 20230224
  Transmission Date: 20230418
  Serious: Yes (Other)
  Sender: FDA-Public Use
  Company Number: US-JNJFOC-20230239394

PATIENT
  Age: 30 Year
  Sex: Female

DRUGS (1)
  1. INVEGA [Suspect]
     Active Substance: PALIPERIDONE
     Indication: Product used for unknown indication
     Dosage: 3 OR 6MG DAILY
     Route: 048
     Dates: start: 20220401, end: 20221201

REACTIONS (2)
  - Renal failure [Unknown]
  - Liver injury [Unknown]

NARRATIVE: CASE EVENT DATE: 20220101
